FAERS Safety Report 18372895 (Version 1)
Quarter: 2020Q4

REPORT INFORMATION
  Report Type: Spontaneous
  Country: CN (occurrence: CN)
  Receive Date: 20201012
  Receipt Date: 20201012
  Transmission Date: 20210114
  Serious: Yes (Disabling)
  Sender: FDA-Public Use
  Company Number: CN-PFIZER INC-2020391307

PATIENT
  Age: 88 Year
  Sex: Female
  Weight: 56 kg

DRUGS (4)
  1. ACICLOVIR [Suspect]
     Active Substance: ACYCLOVIR
     Indication: HERPES ZOSTER
     Dosage: 0.5 G, 3X/DAY
     Route: 041
     Dates: start: 20200922, end: 20200925
  2. ROSUVASTATIN CALCIUM. [Concomitant]
     Active Substance: ROSUVASTATIN CALCIUM
     Indication: HERPES ZOSTER
  3. CELEBREX [Suspect]
     Active Substance: CELECOXIB
     Indication: CAROTID ARTERIOSCLEROSIS
     Dosage: 0.2 G, 1X/DAY
     Route: 048
     Dates: start: 20200922, end: 20200925
  4. ROSUVASTATIN CALCIUM. [Concomitant]
     Active Substance: ROSUVASTATIN CALCIUM
     Indication: CAROTID ARTERIOSCLEROSIS
     Dosage: 10 MG, 1X/DAY
     Route: 048
     Dates: start: 20200922, end: 20200925

REACTIONS (11)
  - Disorganised speech [Recovering/Resolving]
  - Hallucination [Recovering/Resolving]
  - Dizziness [Recovering/Resolving]
  - Delirium [Recovering/Resolving]
  - Product use in unapproved indication [Unknown]
  - Renal impairment [Recovering/Resolving]
  - Off label use [Unknown]
  - Somnolence [Recovering/Resolving]
  - Gait disturbance [Recovering/Resolving]
  - Face oedema [Recovering/Resolving]
  - Acute kidney injury [Recovering/Resolving]

NARRATIVE: CASE EVENT DATE: 20200922
